FAERS Safety Report 23197287 (Version 1)
Quarter: 2023Q4

REPORT INFORMATION
  Report Type: Report from Study
  Country: US (occurrence: US)
  Receive Date: 20231117
  Receipt Date: 20231117
  Transmission Date: 20240110
  Serious: Yes (Death, Other)
  Sender: FDA-Public Use
  Company Number: US-SUN PHARMACEUTICAL INDUSTRIES LTD-2023R1-418441

PATIENT
  Age: 78 Year
  Sex: Male

DRUGS (4)
  1. ASPIRIN [Suspect]
     Active Substance: ASPIRIN
     Indication: Cerebral thrombosis
     Dosage: UNK
     Route: 065
  2. TICAGRELOR [Suspect]
     Active Substance: TICAGRELOR
     Indication: Cerebral thrombosis
     Dosage: UNK
     Route: 065
  3. CANGRELOR [Suspect]
     Active Substance: CANGRELOR
     Indication: Cerebral thrombosis
     Dosage: UNK
     Route: 065
  4. HEPARIN [Suspect]
     Active Substance: HEPARIN SODIUM
     Indication: Cerebral thrombosis
     Dosage: UNK
     Route: 065

REACTIONS (1)
  - Death [Fatal]
